FAERS Safety Report 4335293-2 (Version None)
Quarter: 2004Q2

REPORT INFORMATION
  Report Type: 
  Country: None (occurrence: None)
  Receive Date: 20040408
  Receipt Date: 20040408
  Transmission Date: 20050107
  Serious: Yes (Hospitalization)
  Sender: FDA-Public Use
  Company Number: None

PATIENT
  Age: 57 Year
  Sex: Male
  Weight: 81.2 kg

DRUGS (2)
  1. ROFECOXIB [Suspect]
     Indication: GOUT
     Dosage: 25 MG , 25 MG QD , ORAL
     Route: 048
     Dates: start: 20040102, end: 20040104
  2. COLCHICINE [Concomitant]

REACTIONS (1)
  - GASTROINTESTINAL HAEMORRHAGE [None]
